FAERS Safety Report 6815668-X (Version None)
Quarter: 2010Q3

REPORT INFORMATION
  Report Type: 
  Country: None (occurrence: None)
  Receive Date: 20100702
  Receipt Date: 20100622
  Transmission Date: 20110219
  Serious: Yes (Death)
  Sender: FDA-Public Use
  Company Number: GB-GENENTECH-301823

PATIENT
  Sex: Female

DRUGS (3)
  1. RITUXIMAB [Suspect]
     Indication: RHEUMATOID ARTHRITIS
     Dosage: 1 G, Q6M
     Route: 042
     Dates: start: 20100122
  2. METHOTREXATE [Concomitant]
     Indication: RHEUMATOID ARTHRITIS
     Dosage: 22.5 MG, 1/WEEK
     Route: 048
     Dates: start: 20050201
  3. CARBAMAZEPINE [Concomitant]
     Indication: EPILEPSY
     Route: 048

REACTIONS (2)
  - DYSPNOEA [None]
  - PULMONARY FIBROSIS [None]
